FAERS Safety Report 7208679-6 (Version None)
Quarter: 2011Q1

REPORT INFORMATION
  Report Type: 
  Country: None (occurrence: None)
  Receive Date: 20110104
  Receipt Date: 20110103
  Transmission Date: 20110831
  Serious: No
  Sender: FDA-Public Use
  Company Number: US-PFIZER INC-US-WYE-H15624510

PATIENT
  Sex: Female
  Weight: 77.1 kg

DRUGS (4)
  1. PRISTIQ [Suspect]
     Dosage: 100 MG, 1X/DAY
     Route: 065
     Dates: start: 20100101, end: 20100401
  2. LOVASTATIN [Concomitant]
  3. PRISTIQ [Suspect]
     Dosage: 50 MG, 1X/DAY
     Route: 065
     Dates: start: 20100101, end: 20100101
  4. PRISTIQ [Suspect]
     Indication: DEPRESSION
     Dosage: LOW DOSE
     Route: 065
     Dates: start: 20100101, end: 20100101

REACTIONS (1)
  - NAUSEA [None]
